FAERS Safety Report 9551074 (Version 2)
Quarter: 2013Q3

REPORT INFORMATION
  Report Type: Spontaneous
  Country: CA (occurrence: CA)
  Receive Date: 20130925
  Receipt Date: 20130930
  Transmission Date: 20140515
  Serious: Yes (Other)
  Sender: FDA-Public Use
  Company Number: CA-JNJFOC-20130906870

PATIENT
  Sex: Male

DRUGS (3)
  1. BENADRYL RS ALLERGY 25MG CAPLETS [Suspect]
     Indication: SLEEP DISORDER THERAPY
     Route: 048
     Dates: end: 20130907
  2. LORAZEPAM [Concomitant]
     Indication: ANXIETY
     Dosage: THREE TO FOUR YEARS
     Route: 065
  3. DIAZEPAM [Concomitant]
     Indication: ANXIETY
     Dosage: THREE TO FOUR YEARS
     Route: 065

REACTIONS (5)
  - Self injurious behaviour [Recovering/Resolving]
  - Feeling abnormal [Recovering/Resolving]
  - Hallucination [Recovering/Resolving]
  - Pruritus [Recovering/Resolving]
  - Product label issue [Unknown]
